FAERS Safety Report 6383075-2 (Version None)
Quarter: 2009Q3

REPORT INFORMATION
  Report Type: 
  Country: None (occurrence: None)
  Receive Date: 20090930
  Receipt Date: 20090921
  Transmission Date: 20100115
  Serious: Yes (Other)
  Sender: FDA-Public Use
  Company Number: US-ABBOTT-09P-163-0501773-00

PATIENT
  Sex: Female
  Weight: 85.352 kg

DRUGS (25)
  1. HUMIRA [Suspect]
     Indication: RHEUMATOID ARTHRITIS
     Dates: start: 20080828, end: 20090131
  2. SPIRONOLACTONE [Concomitant]
     Indication: CARDIAC FAILURE CONGESTIVE
  3. SERTRALINE HYDROCHLORIDE [Concomitant]
     Indication: DEPRESSION
  4. METHOTREXATE [Concomitant]
     Indication: RHEUMATOID ARTHRITIS
  5. PREDNISONE TAB [Concomitant]
     Indication: RHEUMATOID ARTHRITIS
  6. FOLIC ACID [Concomitant]
     Indication: RHEUMATOID ARTHRITIS
  7. ENALAPRIL MALEATE [Concomitant]
     Indication: CARDIAC FAILURE CONGESTIVE
  8. LANOXIN [Concomitant]
     Indication: VENTRICULAR FIBRILLATION
  9. MULTIPLE VITAMINS [Concomitant]
     Indication: ROUTINE HEALTH MAINTENANCE
  10. FISH OIL [Concomitant]
     Indication: ROUTINE HEALTH MAINTENANCE
  11. CALCIUM WITH VITAMIN D [Concomitant]
     Indication: ROUTINE HEALTH MAINTENANCE
  12. OMEPRAZOLE [Concomitant]
     Indication: PROPHYLAXIS
  13. OMEPRAZOLE [Concomitant]
     Indication: GASTRIC DISORDER
  14. METOPROLOL [Concomitant]
     Indication: HYPERTENSION
  15. POTASSIUM CHLORIDE [Concomitant]
     Indication: ELECTROLYTE SUBSTITUTION THERAPY
  16. TORSEMIDE [Concomitant]
     Indication: CARDIAC FAILURE CONGESTIVE
  17. MAGNESIUM OXIDE [Concomitant]
     Indication: ELECTROLYTE SUBSTITUTION THERAPY
  18. GLIPIZIDE [Concomitant]
     Indication: DIABETES MELLITUS
  19. SIMVASTATIN [Concomitant]
     Indication: BLOOD CHOLESTEROL INCREASED
  20. DAYPRO [Concomitant]
     Indication: RHEUMATOID ARTHRITIS
  21. ROPINIROLE [Concomitant]
     Indication: RESTLESS LEGS SYNDROME
  22. VICODIN [Concomitant]
     Indication: PAIN
  23. TRAMADOL HCL [Concomitant]
     Indication: PAIN
  24. FLEXERIL [Concomitant]
     Indication: BACK PAIN
  25. AMILORIDE HYDROCHLORIDE [Concomitant]
     Indication: CARDIAC FAILURE CONGESTIVE

REACTIONS (12)
  - ARTHRITIS [None]
  - ARTHROPATHY [None]
  - BLADDER PAIN [None]
  - CERVIX CARCINOMA STAGE 0 [None]
  - CHILLS [None]
  - EPISTAXIS [None]
  - FLUID RETENTION [None]
  - NASAL DISORDER [None]
  - PYREXIA [None]
  - RHEUMATOID NODULE [None]
  - SINUSITIS [None]
  - URINARY TRACT INFECTION [None]
